FAERS Safety Report 9275517 (Version 1)
Quarter: 2013Q2

REPORT INFORMATION
  Report Type: Spontaneous
  Country: US (occurrence: US)
  Receive Date: 20130507
  Receipt Date: 20130507
  Transmission Date: 20140414
  Serious: Yes (Other)
  Sender: FDA-Public Use
  Company Number: US-SANOFI-AVENTIS-2013SA046096

PATIENT
  Age: 59 Year
  Sex: Male

DRUGS (1)
  1. PLAVIX [Suspect]
     Route: 065
     Dates: start: 20090825

REACTIONS (4)
  - Transient ischaemic attack [Not Recovered/Not Resolved]
  - Balance disorder [Not Recovered/Not Resolved]
  - Amnesia [Not Recovered/Not Resolved]
  - Confusional state [Not Recovered/Not Resolved]
